FAERS Safety Report 15763852 (Version 2)
Quarter: 2019Q2

REPORT INFORMATION
  Report Type: Spontaneous
  Country: GB (occurrence: GB)
  Receive Date: 20181227
  Receipt Date: 20190604
  Transmission Date: 20190711
  Serious: Yes (Other)
  Sender: FDA-Public Use
  Company Number: GB-SUN PHARMACEUTICAL INDUSTRIES LTD-2018RR-194649

PATIENT
  Age: 57 Year
  Sex: Female

DRUGS (6)
  1. CAPECITABINE. [Suspect]
     Active Substance: CAPECITABINE
     Indication: COLORECTAL CANCER
     Dosage: 1000 MILLIGRAM/SQ. METER (14 DAYS)
     Route: 048
  2. OXALIPLATIN. [Suspect]
     Active Substance: OXALIPLATIN
     Dosage: 97.5 MILLIGRAM/SQ. METER (21 DAYS)
     Route: 042
     Dates: start: 20110701
  3. ERBITUX [Suspect]
     Active Substance: CETUXIMAB
     Indication: COLORECTAL CANCER
     Dosage: 250 MILLIGRAM/SQ. METER, DAILY
     Route: 042
     Dates: start: 20100810, end: 20101224
  4. CAPECITABINE. [Suspect]
     Active Substance: CAPECITABINE
     Dosage: 25% DOSE REDUCTION ON CAPECITABINE (750 MG/M2)
     Route: 048
     Dates: start: 20110701
  5. OXALIPLATIN. [Suspect]
     Active Substance: OXALIPLATIN
     Indication: COLORECTAL CANCER
     Dosage: 97.5 MILLIGRAM/SQ. METER (21 DAYS)
     Route: 042
  6. ERBITUX [Suspect]
     Active Substance: CETUXIMAB
     Dosage: 250 MILLIGRAM/SQ. METER, DAILY
     Route: 042
     Dates: start: 20110701

REACTIONS (2)
  - Platelet count decreased [Unknown]
  - Palmar-plantar erythrodysaesthesia syndrome [Recovered/Resolved]

NARRATIVE: CASE EVENT DATE: 20101230
